FAERS Safety Report 6520089-3 (Version None)
Quarter: 2009Q4

REPORT INFORMATION
  Report Type: 
  Country: None (occurrence: None)
  Receive Date: 20091229
  Receipt Date: 20091216
  Transmission Date: 20100525
  Serious: Yes (Hospitalization)
  Sender: FDA-Public Use
  Company Number: PHHY2009JP53280

PATIENT
  Age: 19 Year
  Sex: Female

DRUGS (5)
  1. VOLTAREN [Suspect]
     Indication: INTERVERTEBRAL DISC PROTRUSION
  2. SULTAMICILLIN TOSILATE [Concomitant]
     Dosage: UNK
     Route: 042
  3. CARBENIN [Concomitant]
     Dosage: UNK
     Route: 042
  4. MEFENAMIC ACID [Concomitant]
     Dosage: UNK
     Route: 048
  5. RULID [Concomitant]
     Dosage: UNK
     Route: 048

REACTIONS (7)
  - CELLULITIS [None]
  - ERYTHEMA [None]
  - HEPATIC FUNCTION ABNORMAL [None]
  - INJURY [None]
  - LYMPHOEDEMA [None]
  - PAIN IN EXTREMITY [None]
  - TENDERNESS [None]
